FAERS Safety Report 5746355-7 (Version None)
Quarter: 2008Q2

REPORT INFORMATION
  Report Type: 
  Country: None (occurrence: None)
  Receive Date: 20080522
  Receipt Date: 20080519
  Transmission Date: 20081010
  Serious: Yes (Hospitalization)
  Sender: FDA-Public Use
  Company Number: PHEH2008US04716

PATIENT
  Age: 36 Year
  Sex: Male

DRUGS (2)
  1. LAMISIL [Suspect]
     Indication: ONYCHOMYCOSIS
     Route: 048
     Dates: end: 20080505
  2. LAMISIL [Suspect]
     Dosage: UNK, UNK
     Route: 048
     Dates: start: 20080501, end: 20080518

REACTIONS (4)
  - BLOOD GLUCOSE INCREASED [None]
  - NAUSEA [None]
  - THIRST [None]
  - URINE OUTPUT INCREASED [None]
